FAERS Safety Report 7969664-X (Version None)
Quarter: 2011Q4

REPORT INFORMATION
  Report Type: 
  Country: None (occurrence: None)
  Receive Date: 20111208
  Receipt Date: 20111018
  Transmission Date: 20120403
  Serious: Yes (Other)
  Sender: FDA-Public Use
  Company Number: ADR-2011-11669

PATIENT
  Sex: Male

DRUGS (2)
  1. LIORESAL [Suspect]
     Indication: MUSCLE SPASTICITY
     Dosage: 46 MCG/DAY
  2. LIORESAL [Suspect]
     Indication: MULTIPLE SCLEROSIS
     Dosage: 46 MCG/DAY

REACTIONS (6)
  - IMPLANT SITE SWELLING [None]
  - CONDITION AGGRAVATED [None]
  - IMPLANT SITE EFFUSION [None]
  - FATIGUE [None]
  - MUSCLE SPASTICITY [None]
  - DEVICE BREAKAGE [None]
